FAERS Safety Report 5753209-9 (Version None)
Quarter: 2008Q2

REPORT INFORMATION
  Report Type: 
  Country: None (occurrence: None)
  Receive Date: 20080530
  Receipt Date: 20080121
  Transmission Date: 20081010
  Serious: No
  Sender: FDA-Public Use
  Company Number: US-KINGPHARMUSA00001-K200800075

PATIENT

DRUGS (1)
  1. CORTISPORIN OINTMENT [Suspect]
     Route: 047
     Dates: start: 20080117, end: 20080118

REACTIONS (3)
  - DRUG DISPENSING ERROR [None]
  - INCORRECT ROUTE OF DRUG ADMINISTRATION [None]
  - NO ADVERSE EVENT [None]
